FAERS Safety Report 14547329 (Version 4)
Quarter: 2018Q1

REPORT INFORMATION
  Report Type: Spontaneous
  Country: DE (occurrence: DE)
  Receive Date: 20180219
  Receipt Date: 20180303
  Transmission Date: 20180509
  Serious: Yes (Death, Life-Threatening, Hospitalization, Other)
  Sender: FDA-Public Use
  Company Number: PHHY2014DE185016

PATIENT
  Age: 88 Year
  Sex: Male

DRUGS (4)
  1. PREDNISOLON [Suspect]
     Active Substance: PREDNISOLONE
     Indication: PROSTATE CANCER METASTATIC
     Dosage: 10 MG, QD
     Route: 048
     Dates: start: 20140803, end: 20140829
  2. ZOLADEX [Suspect]
     Active Substance: GOSERELIN ACETATE
     Indication: PROSTATE CANCER METASTATIC
     Route: 065
     Dates: start: 20120828
  3. PROLIA [Suspect]
     Active Substance: DENOSUMAB
     Indication: PROSTATE CANCER METASTATIC
     Dosage: 120 MG, QMO
     Route: 058
     Dates: start: 20140701
  4. ABIRATERONE ACETATE. [Suspect]
     Active Substance: ABIRATERONE ACETATE
     Indication: PROSTATE CANCER METASTATIC
     Dosage: 1000 MG, QD
     Route: 048
     Dates: start: 20140804, end: 20140827

REACTIONS (2)
  - General physical health deterioration [Fatal]
  - Death [Fatal]

NARRATIVE: CASE EVENT DATE: 2014
